FAERS Safety Report 19925096 (Version 1)
Quarter: 2021Q4

REPORT INFORMATION
  Report Type: Spontaneous
  Country: US (occurrence: US)
  Receive Date: 20211006
  Receipt Date: 20211006
  Transmission Date: 20220304
  Serious: No
  Sender: FDA-Public Use
  Company Number: US-PFIZER INC-202101246129

PATIENT
  Age: 39 Year
  Sex: Female
  Weight: 57.6 kg

DRUGS (1)
  1. AZITHROMYCIN ANHYDROUS [Suspect]
     Active Substance: AZITHROMYCIN ANHYDROUS
     Indication: Sinus congestion
     Dosage: 250 MG

REACTIONS (1)
  - Therapeutic product effect incomplete [Unknown]
